FAERS Safety Report 7115466-6 (Version None)
Quarter: 2010Q4

REPORT INFORMATION
  Report Type: 
  Country: None (occurrence: None)
  Receive Date: 20101122
  Receipt Date: 20101006
  Transmission Date: 20110411
  Serious: No
  Sender: FDA-Public Use
  Company Number: US-BAYER-201015365NA

PATIENT
  Age: 56 Year
  Sex: Female

DRUGS (2)
  1. CLIMARA PRO [Suspect]
     Indication: HOT FLUSH
     Dosage: 0.045 ESTRADIOL AND 0.015 LEVONORGESTREL
     Route: 062
     Dates: start: 20080101
  2. CLIMARA PRO [Suspect]
     Dosage: 0.045 ESTRADIOL AND 0.015 LEVONORGESTREL
     Route: 062

REACTIONS (1)
  - APPLICATION SITE BLEEDING [None]
